FAERS Safety Report 9557688 (Version 1)
Quarter: 2013Q3

REPORT INFORMATION
  Report Type: Spontaneous
  Country: US (occurrence: None)
  Receive Date: 20130726
  Receipt Date: 20130726
  Transmission Date: 20140515
  Serious: Yes (Hospitalization)
  Sender: FDA-Public Use
  Company Number: UTC-029278

PATIENT
  Age: 68 Year
  Sex: Female
  Weight: 154.5 kg

DRUGS (1)
  1. REMODULIN (5 MILLIGRAM/ MILLILITERS, INJECTION FOR INFUSION) (TREPROSTINIL SODIUM) [Suspect]
     Indication: PULMONARY ARTERIAL HYPERTENSION
     Dosage: (0.01 UG/KG, 1 IN 1 MIN)
     Route: 058
     Dates: start: 20110617

REACTIONS (1)
  - Pulmonary hypertension [None]
